FAERS Safety Report 6693771-5 (Version None)
Quarter: 2010Q2

REPORT INFORMATION
  Report Type: 
  Country: None (occurrence: None)
  Receive Date: 20100421
  Receipt Date: 20100406
  Transmission Date: 20101027
  Serious: Yes (Other)
  Sender: FDA-Public Use
  Company Number: 20100160

PATIENT
  Age: 44 Year
  Sex: Female

DRUGS (9)
  1. ONDANSETRON [Suspect]
     Indication: PROPHYLAXIS OF NAUSEA AND VOMITING
     Dosage: 4 MG INTRAVENOUS
     Route: 042
  2. FENTANYL [Suspect]
     Indication: INDUCTION OF ANAESTHESIA
     Dosage: 100 UG AND 250 UG
  3. QUETIAPINE [Suspect]
  4. DULOXETINE HYDROCHLORIDE [Suspect]
  5. LITHIUM CARBONATE [Suspect]
  6. CLONAZEPAM [Concomitant]
  7. LAMOTRIGINE [Concomitant]
  8. TOPIRAMATE [Concomitant]
  9. MIDAZOLAM HCL [Concomitant]

REACTIONS (4)
  - APHASIA [None]
  - DISTURBANCE IN ATTENTION [None]
  - SEROTONIN SYNDROME [None]
  - UNRESPONSIVE TO STIMULI [None]
